FAERS Safety Report 14290429 (Version 1)
Quarter: 2017Q4

REPORT INFORMATION
  Report Type: Spontaneous
  Country: US (occurrence: US)
  Receive Date: 20171215
  Receipt Date: 20171215
  Transmission Date: 20180321
  Serious: No
  Sender: FDA-Public Use
  Company Number: US-009507513-1711USA007362

PATIENT
  Age: 27 Year
  Sex: Female
  Weight: 64.4 kg

DRUGS (2)
  1. NEXPLANON [Suspect]
     Active Substance: ETONOGESTREL
     Indication: CONTRACEPTION
     Dosage: 1 DF, UNK
     Route: 059
     Dates: start: 20160801, end: 20171214
  2. ADVIL [Concomitant]
     Active Substance: IBUPROFEN

REACTIONS (2)
  - Weight increased [Unknown]
  - Eating disorder [Unknown]

NARRATIVE: CASE EVENT DATE: 20160801
